FAERS Safety Report 18702243 (Version 1)
Quarter: 2021Q1

REPORT INFORMATION
  Report Type: Spontaneous
  Country: PL (occurrence: PL)
  Receive Date: 20210105
  Receipt Date: 20210105
  Transmission Date: 20210419
  Serious: Yes (Life-Threatening, Other)
  Sender: FDA-Public Use
  Company Number: PL-FRESENIUS KABI-FK202100072

PATIENT
  Age: 28 Year
  Sex: Male

DRUGS (6)
  1. AMOXICILLIN SODIUM/CLAVULANATE POTASSIUM [Suspect]
     Active Substance: AMOXICILLIN\CLAVULANATE POTASSIUM
     Indication: PANCREATITIS ACUTE
  2. VANCOMYCIN (MANUFACTURER UNKNOWN) [Suspect]
     Active Substance: VANCOMYCIN
     Indication: CLOSTRIDIUM DIFFICILE INFECTION
     Route: 048
  3. AMOXICILLIN SODIUM/CLAVULANATE POTASSIUM [Suspect]
     Active Substance: AMOXICILLIN\CLAVULANATE POTASSIUM
     Indication: PROPHYLAXIS
     Dosage: UNKNOWN
     Route: 065
  4. VANCOMYCIN [Suspect]
     Active Substance: VANCOMYCIN
     Indication: CLOSTRIDIUM DIFFICILE INFECTION
     Route: 054
  5. METRONIDAZOLE. [Suspect]
     Active Substance: METRONIDAZOLE
     Indication: CLOSTRIDIUM DIFFICILE INFECTION
     Route: 042
  6. NO DRUG NAME [Suspect]
     Active Substance: UNSPECIFIED INGREDIENT
     Indication: SEPSIS
     Dosage: UNKNOWN
     Route: 065

REACTIONS (8)
  - Sepsis [Recovering/Resolving]
  - Ileus paralytic [Recovering/Resolving]
  - Escherichia infection [Unknown]
  - Drug ineffective [Recovering/Resolving]
  - Acute kidney injury [Recovered/Resolved]
  - Septic shock [Recovering/Resolving]
  - Megacolon [Recovering/Resolving]
  - Clostridium difficile infection [Recovering/Resolving]
